FAERS Safety Report 13695132 (Version 1)
Quarter: 2017Q2

REPORT INFORMATION
  Report Type: Spontaneous
  Country: US (occurrence: US)
  Receive Date: 20170627
  Receipt Date: 20170627
  Transmission Date: 20170830
  Serious: No
  Sender: FDA-Public Use
  Company Number: US-EGALET US INC-US-2017EGA000228

PATIENT

DRUGS (1)
  1. SPRIX [Suspect]
     Active Substance: KETOROLAC TROMETHAMINE
     Indication: PRODUCT USED FOR UNKNOWN INDICATION
     Dosage: 1 SPRAY IN ONE NOSTRIL EVERY 6-8 HOURS
     Route: 045
     Dates: start: 20161115

REACTIONS (5)
  - Throat irritation [Recovering/Resolving]
  - Wrong technique in product usage process [Recovering/Resolving]
  - Rhinorrhoea [Recovering/Resolving]
  - Lacrimation increased [Recovering/Resolving]
  - Nasal discomfort [Recovering/Resolving]

NARRATIVE: CASE EVENT DATE: 20161115
